FAERS Safety Report 7709341-3 (Version None)
Quarter: 2011Q3

REPORT INFORMATION
  Report Type: 
  Country: None (occurrence: None)
  Receive Date: 20110825
  Receipt Date: 20110817
  Transmission Date: 20111222
  Serious: Yes (Hospitalization, Other)
  Sender: FDA-Public Use
  Company Number: US-BAYER-2011-013065

PATIENT
  Age: 30 Year
  Sex: Female
  Weight: 96.599 kg

DRUGS (6)
  1. YASMIN [Suspect]
     Indication: CONTRACEPTION
     Dosage: UNK
     Route: 048
     Dates: start: 20020701, end: 20021101
  2. YASMIN [Suspect]
     Indication: ACNE
     Dosage: UNK
     Dates: start: 20040601, end: 20060801
  3. YAZ [Suspect]
     Indication: CONTRACEPTION
     Dosage: UNK
     Dates: start: 20070601, end: 20070901
  4. YAZ [Suspect]
     Indication: ACNE
  5. ACIPHEX [Concomitant]
     Dosage: UNK
     Dates: start: 20060613
  6. HYDROCODONE BITARTRATE [Concomitant]
     Dosage: UNK
     Dates: start: 20060429

REACTIONS (6)
  - CHOLECYSTITIS CHRONIC [None]
  - ANXIETY [None]
  - EMOTIONAL DISTRESS [None]
  - GALLBLADDER INJURY [None]
  - PAIN [None]
  - CHOLELITHIASIS [None]
